FAERS Safety Report 17097101 (Version 1)
Quarter: 2019Q4

REPORT INFORMATION
  Report Type: Spontaneous
  Country: US (occurrence: US)
  Receive Date: 20191202
  Receipt Date: 20191202
  Transmission Date: 20200122
  Serious: No
  Sender: FDA-Public Use
  Company Number: US-ASTRAZENECA-2019SF66758

PATIENT
  Sex: Male
  Weight: 6.7 kg

DRUGS (6)
  1. FLU SHOT [Concomitant]
     Active Substance: INFLUENZA VIRUS VACCINE
  2. SYNAGIS [Suspect]
     Active Substance: PALIVIZUMAB
     Indication: LOW BIRTH WEIGHT BABY
     Dosage: 15 MG/KG MONTHLY (50MG/0.5ML VL)
     Route: 030
     Dates: start: 20191118
  3. ASPIRIN. [Concomitant]
     Active Substance: ASPIRIN
     Dosage: 81.0MG UNKNOWN
  4. DIGOXIN. [Concomitant]
     Active Substance: DIGOXIN
     Dosage: 50.0UG/ML UNKNOWN
     Route: 065
  5. NUTRAMIGEN DHA-ARA [Concomitant]
     Dosage: 2.8 G/100 UNKNOWN
     Route: 065
  6. EPINEPHRINE HCL [Concomitant]
     Active Substance: EPINEPHRINE
     Dosage: UNKNOWN
     Route: 065

REACTIONS (4)
  - Diarrhoea [Recovered/Resolved]
  - Fatigue [Recovered/Resolved]
  - Somnolence [Recovered/Resolved]
  - Irritability [Recovered/Resolved]
